FAERS Safety Report 9713818 (Version 1)
Quarter: 2013Q4

REPORT INFORMATION
  Report Type: Spontaneous
  Country: US (occurrence: None)
  Receive Date: 20131126
  Receipt Date: 20131126
  Transmission Date: 20140711
  Serious: Yes (Disabling)
  Sender: FDA-Public Use
  Company Number: None

PATIENT
  Age: 73 Year
  Sex: Female
  Weight: 51.26 kg

DRUGS (5)
  1. SIMVASTATIN [Suspect]
     Indication: HYPERLIPIDAEMIA
     Dosage: 1 PILL
     Route: 048
     Dates: start: 2001
  2. CRESTOR [Concomitant]
  3. METFORMIN [Concomitant]
  4. ASPIRIN [Concomitant]
  5. MULTIVITAMINS [Concomitant]

REACTIONS (3)
  - Muscle spasms [None]
  - Gait disturbance [None]
  - Movement disorder [None]
